FAERS Safety Report 21313094 (Version 1)
Quarter: 2022Q3

REPORT INFORMATION
  Report Type: Report from Study
  Country: GB (occurrence: GB)
  Receive Date: 20220909
  Receipt Date: 20220909
  Transmission Date: 20221027
  Serious: Yes (Other)
  Sender: FDA-Public Use
  Company Number: GB-TAKEDA-2022TUS062792

PATIENT
  Age: 80 Year
  Sex: Male

DRUGS (8)
  1. ICATIBANT [Suspect]
     Active Substance: ICATIBANT ACETATE
     Indication: Hereditary angioedema
     Dosage: UNK
     Route: 065
     Dates: start: 20150209
  2. ICATIBANT [Suspect]
     Active Substance: ICATIBANT ACETATE
     Indication: Hereditary angioedema
     Dosage: UNK
     Route: 065
     Dates: start: 20150209
  3. ICATIBANT [Suspect]
     Active Substance: ICATIBANT ACETATE
     Dosage: UNK
     Route: 065
     Dates: start: 20150522
  4. ICATIBANT [Suspect]
     Active Substance: ICATIBANT ACETATE
     Dosage: UNK
     Route: 065
     Dates: start: 20150522
  5. MINERALS\VITAMINS [Concomitant]
     Active Substance: MINERALS\VITAMINS
     Indication: Prophylaxis
     Dosage: UNK UNK, SINGLE
     Route: 048
     Dates: start: 20100101
  6. FISH OIL\OMEGA-3 FATTY ACIDS [Concomitant]
     Active Substance: FISH OIL\OMEGA-3 FATTY ACIDS
     Indication: Prophylaxis
     Dosage: UNK UNK, SINGLE
     Route: 048
     Dates: start: 20100101
  7. BECLOMETHASONE [Concomitant]
     Active Substance: BECLOMETHASONE
     Indication: Rhinitis
     Dosage: 50 MICROGRAM, BID
     Route: 045
     Dates: start: 20120705
  8. LEVOTHYROXINE [Concomitant]
     Active Substance: LEVOTHYROXINE
     Indication: Hypothyroidism
     Dosage: 50 MILLIGRAM, QD
     Route: 048
     Dates: start: 20130101, end: 20160731

REACTIONS (1)
  - Prostate cancer [Not Recovered/Not Resolved]

NARRATIVE: CASE EVENT DATE: 20151125
